FAERS Safety Report 12592899 (Version 1)
Quarter: 2016Q3

REPORT INFORMATION
  Report Type: Spontaneous
  Country: US (occurrence: US)
  Receive Date: 20160726
  Receipt Date: 20160726
  Transmission Date: 20161109
  Serious: No
  Sender: FDA-Public Use
  Company Number: US-ABBVIE-15P-163-1505694-00

PATIENT
  Age: 77 Year
  Weight: 61.29 kg

DRUGS (21)
  1. SYNTHROID [Suspect]
     Active Substance: LEVOTHYROXINE SODIUM
     Indication: PRODUCT USED FOR UNKNOWN INDICATION
     Route: 065
     Dates: start: 2008, end: 2009
  2. ARMOUR THYROID [Concomitant]
     Active Substance: THYROID, PORCINE
     Indication: THYROID DISORDER
     Route: 048
     Dates: start: 2009
  3. FOLACIN B6 B12 [Concomitant]
     Indication: PRODUCT USED FOR UNKNOWN INDICATION
  4. CO ENZYME B50 [Concomitant]
     Indication: VITAMIN SUPPLEMENTATION
     Route: 048
     Dates: start: 2009
  5. TUNA OMEGA [Concomitant]
     Indication: BLOOD CHOLESTEROL ABNORMAL
     Dosage: EVERY NIGHT
  6. TENORMIN [Concomitant]
     Active Substance: ATENOLOL
     Indication: BLOOD PRESSURE ABNORMAL
     Route: 048
  7. PRISTIQ EXTENDED-RELEASE [Suspect]
     Active Substance: DESVENLAFAXINE SUCCINATE
     Indication: NEURALGIA
  8. XANAX [Suspect]
     Active Substance: ALPRAZOLAM
     Indication: PANIC ATTACK
     Route: 048
  9. VITAMIN D3 [Concomitant]
     Active Substance: CHOLECALCIFEROL
     Indication: PRODUCT USED FOR UNKNOWN INDICATION
     Dosage: TWO EVEY NIGHT
  10. SPIRONOLACTONE. [Concomitant]
     Active Substance: SPIRONOLACTONE
     Indication: DIURETIC THERAPY
     Dosage: 1/2 TABLET
  11. MAGNESIUM OXIDE. [Concomitant]
     Active Substance: MAGNESIUM OXIDE
     Indication: CARDIAC DISORDER
     Route: 048
     Dates: start: 20151106
  12. ASPIRIN (E.C.) [Concomitant]
     Active Substance: ASPIRIN
     Indication: CEREBROVASCULAR ACCIDENT PROPHYLAXIS
     Dosage: EVERY NIGHT
     Route: 048
     Dates: start: 1970
  13. TYLENOL EXTRA STRENGTH [Concomitant]
     Active Substance: ACETAMINOPHEN
     Indication: PRODUCT USED FOR UNKNOWN INDICATION
  14. PROBIOTIC [Concomitant]
     Active Substance: PROBIOTICS NOS
     Indication: IRRITABLE BOWEL SYNDROME
     Dosage: 35 BILLION/2 A DAY ONE IN MORNING AND ONE AT NIGHT
     Dates: start: 2009
  15. PRISTIQ EXTENDED-RELEASE [Suspect]
     Active Substance: DESVENLAFAXINE SUCCINATE
     Indication: ABNORMAL DREAMS
     Route: 048
     Dates: start: 20151105, end: 20151110
  16. CALCIUM MAGNESIUM + ZINC [Concomitant]
     Indication: BONE DISORDER
     Dosage: NIGHTLY
     Dates: start: 2009
  17. LOSARTAN K [Concomitant]
     Active Substance: LOSARTAN POTASSIUM
     Indication: BLOOD PRESSURE ABNORMAL
     Dosage: AT NIGHT
     Route: 048
  18. CALCIUM LACTATE [Concomitant]
     Active Substance: CALCIUM LACTATE
     Indication: BONE DISORDER
     Dosage: 2 EVERY NIGHT
     Dates: start: 20150102
  19. VITAMIN B12 [Concomitant]
     Active Substance: CYANOCOBALAMIN
     Indication: FATIGUE
     Dosage: 1 INJECTION
     Route: 058
     Dates: start: 2009
  20. TUNA OMEGA [Concomitant]
     Indication: CARDIAC DISORDER
  21. TUNA OMEGA [Concomitant]
     Indication: PAIN

REACTIONS (18)
  - Feeling abnormal [Unknown]
  - Memory impairment [Recovering/Resolving]
  - Muscle spasms [Recovered/Resolved]
  - Confusional state [Recovering/Resolving]
  - Adverse drug reaction [Not Recovered/Not Resolved]
  - Dizziness [Recovering/Resolving]
  - Panic attack [Recovered/Resolved]
  - Feeling abnormal [Recovering/Resolving]
  - Diarrhoea [Not Recovered/Not Resolved]
  - Nausea [Not Recovered/Not Resolved]
  - Headache [Recovering/Resolving]
  - Flushing [Recovering/Resolving]
  - Drug ineffective [Unknown]
  - Somnolence [Unknown]
  - Hypertension [Recovering/Resolving]
  - Erythema [Recovering/Resolving]
  - Feeling jittery [Recovered/Resolved]
  - Tinnitus [Recovered/Resolved]

NARRATIVE: CASE EVENT DATE: 20151105
